FAERS Safety Report 13834248 (Version 1)
Quarter: 2017Q3

REPORT INFORMATION
  Report Type: Spontaneous
  Country: US (occurrence: US)
  Receive Date: 20170804
  Receipt Date: 20170804
  Transmission Date: 20171127
  Serious: No
  Sender: FDA-Public Use
  Company Number: US-PFIZER INC-2017334922

PATIENT
  Sex: Female

DRUGS (3)
  1. PANTOPRAZOLE [Suspect]
     Active Substance: PANTOPRAZOLE
     Dosage: 40 MG, UNK
  2. DIAZEPAM. [Suspect]
     Active Substance: DIAZEPAM
     Dosage: 5 MG, UNK
  3. ONDANSETRON [Suspect]
     Active Substance: ONDANSETRON
     Dosage: 4 MG, UNK

REACTIONS (25)
  - Depression [Unknown]
  - Pyrexia [Unknown]
  - Night sweats [Unknown]
  - Hot flush [Unknown]
  - White blood cell count increased [Unknown]
  - Fatigue [Unknown]
  - Joint swelling [Unknown]
  - Disturbance in attention [Unknown]
  - Heart rate increased [Unknown]
  - Stomatitis [Unknown]
  - Myalgia [Unknown]
  - Paraesthesia [Unknown]
  - C-reactive protein increased [Unknown]
  - Joint stiffness [Unknown]
  - Photosensitivity reaction [Unknown]
  - Granulocyte count increased [Unknown]
  - Rash [Unknown]
  - Headache [Unknown]
  - Arthralgia [Unknown]
  - Tenderness [Unknown]
  - Blood pressure increased [Unknown]
  - Lymphocyte count decreased [Unknown]
  - Eosinophil count decreased [Unknown]
  - Amnesia [Unknown]
  - Anxiety [Unknown]
